FAERS Safety Report 7099651-8 (Version None)
Quarter: 2010Q4

REPORT INFORMATION
  Report Type: 
  Country: None (occurrence: None)
  Receive Date: 20101104
  Receipt Date: 20101027
  Transmission Date: 20110411
  Serious: Yes (Hospitalization, Other)
  Sender: FDA-Public Use
  Company Number: 2010AC000371

PATIENT
  Age: 42 Year

DRUGS (5)
  1. DIGOXIN [Suspect]
     Dosage: (PO) (0.25 MG; 1X; PO)
     Route: 048
     Dates: start: 20010130, end: 20041201
  2. DIGOXIN [Suspect]
     Dosage: (PO) (0.25 MG; 1X; PO)
     Route: 048
     Dates: start: 20060301, end: 20080601
  3. LEXAPRO [Concomitant]
  4. ALDACTONE [Concomitant]
  5. COREG [Concomitant]

REACTIONS (12)
  - ANXIETY [None]
  - BLOOD GLUCOSE INCREASED [None]
  - BLOOD POTASSIUM DECREASED [None]
  - CARDIAC DISORDER [None]
  - CARDIAC FAILURE [None]
  - DECREASED ACTIVITY [None]
  - DISCOMFORT [None]
  - DYSPNOEA [None]
  - ECONOMIC PROBLEM [None]
  - FATIGUE [None]
  - HEART TRANSPLANT [None]
  - PAIN [None]
